FAERS Safety Report 7000652-6 (Version None)
Quarter: 2010Q3

REPORT INFORMATION
  Report Type: 
  Country: None (occurrence: None)
  Receive Date: 20100920
  Receipt Date: 20100719
  Transmission Date: 20110219
  Serious: Yes (Hospitalization)
  Sender: FDA-Public Use
  Company Number: US-ASTRAZENECA-2010SE33675

PATIENT
  Age: 60 Year
  Sex: Female
  Weight: 98.9 kg

DRUGS (7)
  1. SEROQUEL [Suspect]
     Indication: BIPOLAR DISORDER
     Route: 048
     Dates: start: 20000101
  2. SEROQUEL [Suspect]
     Indication: MAJOR DEPRESSION
     Route: 048
     Dates: start: 20000101
  3. ALPRAZOLAM [Concomitant]
  4. GABAPENTIN [Concomitant]
  5. METFORMIN [Concomitant]
  6. LISINOPRIL [Concomitant]
  7. COREG [Concomitant]

REACTIONS (13)
  - CARDIAC DISORDER [None]
  - COGNITIVE DISORDER [None]
  - CONSTIPATION [None]
  - DIABETES MELLITUS [None]
  - DIZZINESS [None]
  - DRY MOUTH [None]
  - FALL [None]
  - FEELING ABNORMAL [None]
  - INCORRECT DOSE ADMINISTERED [None]
  - MEMORY IMPAIRMENT [None]
  - SOMNOLENCE [None]
  - SUICIDE ATTEMPT [None]
  - WALKING DISABILITY [None]
